FAERS Safety Report 5029038-0 (Version None)
Quarter: 2006Q2

REPORT INFORMATION
  Report Type: 
  Country: None (occurrence: None)
  Receive Date: 20060613
  Receipt Date: 20060606
  Transmission Date: 20061013
  Serious: Yes (Hospitalization)
  Sender: FDA-Public Use
  Company Number: 2006RL000206

PATIENT
  Age: 81 Year
  Sex: Male

DRUGS (4)
  1. ISRADIPINE [Suspect]
     Indication: MYOCARDIAL ISCHAEMIA
     Dosage: 2.5 MG; PO
     Route: 048
  2. ATENOLOL [Suspect]
     Dosage: 25 MG; QD
  3. PLAVIX [Suspect]
     Dosage: 75 MG; QD
  4. ALLOPURINOL [Suspect]
     Dosage: 200 MG; QD

REACTIONS (3)
  - ASTHENIA [None]
  - COUGH [None]
  - PULMONARY FIBROSIS [None]
